FAERS Safety Report 14346632 (Version 1)
Quarter: 2018Q1

REPORT INFORMATION
  Report Type: Spontaneous
  Country: IT (occurrence: IT)
  Receive Date: 20180103
  Receipt Date: 20180103
  Transmission Date: 20180509
  Serious: Yes (Other)
  Sender: FDA-Public Use
  Company Number: IT-PFIZER INC-2017553010

PATIENT
  Age: 51 Year
  Sex: Female

DRUGS (1)
  1. XANAX [Suspect]
     Active Substance: ALPRAZOLAM
     Indication: ANXIETY
     Dosage: 10 ML, TOTAL
     Route: 048
     Dates: start: 20171124, end: 20171124

REACTIONS (1)
  - Drug abuse [Recovering/Resolving]

NARRATIVE: CASE EVENT DATE: 20171124
